FAERS Safety Report 7776912-8 (Version None)
Quarter: 2011Q3

REPORT INFORMATION
  Report Type: 
  Country: None (occurrence: None)
  Receive Date: 20110923
  Receipt Date: 20110923
  Transmission Date: 20111222
  Serious: No
  Sender: FDA-Public Use
  Company Number: None

PATIENT
  Age: 55 Year
  Sex: Male
  Weight: 102.7 kg

DRUGS (1)
  1. NATALIZUMAB [Suspect]
     Indication: PAIN
     Dates: start: 20110505, end: 20110801

REACTIONS (1)
  - JC VIRUS INFECTION [None]
